FAERS Safety Report 10722464 (Version 1)
Quarter: 2015Q1

REPORT INFORMATION
  Report Type: Spontaneous
  Country: CH (occurrence: CH)
  Receive Date: 20150120
  Receipt Date: 20150120
  Transmission Date: 20150721
  Serious: Yes (Other)
  Sender: FDA-Public Use
  Company Number: CH-MERCK-1501CHE006263

PATIENT
  Age: 43 Year
  Sex: Female

DRUGS (3)
  1. ALCOHOL. [Suspect]
     Active Substance: ALCOHOL
     Dosage: UNKNOWN
     Route: 048
     Dates: start: 20141114, end: 20141114
  2. AERIUS [Suspect]
     Active Substance: DESLORATADINE
     Dosage: STRENGTH:5MG, 20 TO 50 DOSE UNITS, TOTAL DAILY DOSE: 100-250 MG
     Route: 048
     Dates: start: 20141114, end: 20141114
  3. POTASSIUM IODIDE [Suspect]
     Active Substance: POTASSIUM IODIDE
     Dosage: STRENGTH:65MG, 12 DOSE UNITS
     Route: 048
     Dates: start: 20141114, end: 20141114

REACTIONS (6)
  - Tachycardia [Recovered/Resolved]
  - Stupor [Recovered/Resolved]
  - Overdose [Recovered/Resolved]
  - Nausea [Recovered/Resolved]
  - Suicide attempt [Recovered/Resolved]
  - Vomiting [Recovered/Resolved]

NARRATIVE: CASE EVENT DATE: 20141114
